FAERS Safety Report 8077789-6 (Version None)
Quarter: 2012Q1

REPORT INFORMATION
  Report Type: 
  Country: None (occurrence: None)
  Receive Date: 20120127
  Receipt Date: 20120117
  Transmission Date: 20120608
  Serious: Yes (Hospitalization, Congenital Anomaly, Other)
  Sender: FDA-Public Use
  Company Number: US-PFIZER INC-2011159464

PATIENT
  Sex: Female
  Weight: 3.7 kg

DRUGS (1)
  1. EFFEXOR XR [Suspect]
     Dosage: 75 MG, 3X/DAY
     Route: 064
     Dates: start: 20050101

REACTIONS (22)
  - VENTRICULAR SEPTAL DEFECT [None]
  - RIGHT VENTRICULAR HYPERTROPHY [None]
  - ARTERIAL DISORDER [None]
  - HYPOTONIA [None]
  - PATENT DUCTUS ARTERIOSUS [None]
  - CARDIOMEGALY [None]
  - ATRIAL SEPTAL DEFECT [None]
  - TRANSPOSITION OF THE GREAT VESSELS [None]
  - PULMONARY OEDEMA [None]
  - HEMIPARESIS [None]
  - MATERNAL EXPOSURE TIMING UNSPECIFIED [None]
  - HYPOPLASTIC RIGHT HEART SYNDROME [None]
  - TRICUSPID VALVE INCOMPETENCE [None]
  - ATELECTASIS NEONATAL [None]
  - DEVELOPMENTAL DELAY [None]
  - TACHYPNOEA [None]
  - HYPOPLASTIC LEFT HEART SYNDROME [None]
  - PULMONARY VALVE STENOSIS [None]
  - CARDIAC FAILURE CONGESTIVE [None]
  - PYELOCALIECTASIS [None]
  - FEEDING DISORDER [None]
  - GROSS MOTOR DELAY [None]
